FAERS Safety Report 9258580 (Version 3)
Quarter: 2013Q2

REPORT INFORMATION
  Report Type: Report from Study
  Country: US (occurrence: US)
  Receive Date: 20130426
  Receipt Date: 20130619
  Transmission Date: 20140414
  Serious: Yes (Hospitalization)
  Sender: FDA-Public Use
  Company Number: US-JNJFOC-20130413081

PATIENT
  Age: 14 Year
  Sex: Female
  Weight: 43.8 kg

DRUGS (7)
  1. REMICADE [Suspect]
     Indication: INFLAMMATORY BOWEL DISEASE
     Route: 042
     Dates: start: 20091030, end: 20100527
  2. CIMZIA [Concomitant]
     Route: 065
  3. METHOTREXATE [Concomitant]
     Route: 065
  4. PREDNISONE [Concomitant]
     Route: 065
  5. FLUOXETINE [Concomitant]
     Route: 065
  6. FOLIC ACID [Concomitant]
     Route: 065
  7. PANTOPRAZOLE [Concomitant]
     Route: 065

REACTIONS (1)
  - Crohn^s disease [Recovered/Resolved]
